FAERS Safety Report 19796826 (Version 1)
Quarter: 2021Q3

REPORT INFORMATION
  Report Type: Spontaneous
  Country: FR (occurrence: FR)
  Receive Date: 20210907
  Receipt Date: 20210907
  Transmission Date: 20211014
  Serious: Yes (Other)
  Sender: FDA-Public Use
  Company Number: FR-MYLANLABS-2021M1023875

PATIENT
  Age: 31 Year
  Sex: Male

DRUGS (10)
  1. TRAMADOL. [Suspect]
     Active Substance: TRAMADOL
     Dosage: 500 MILLIGRAM, QD (500 MILLIGRAM, 1/DAY   )
     Route: 048
  2. BUPRENORPHINE HYDROCHLORIDE. [Concomitant]
     Active Substance: BUPRENORPHINE HYDROCHLORIDE
     Indication: PAIN
     Dosage: 18 MILLIGRAM, QD (18 MILLIGRAM, 1/DAY )
     Route: 065
  3. ACUPAN [Concomitant]
     Active Substance: NEFOPAM HYDROCHLORIDE
     Indication: HEADACHE
     Dosage: UNK ((3 AMPOULES)) IN FEBRUARY
  4. METHADONE [Concomitant]
     Active Substance: METHADONE HYDROCHLORIDE
     Dosage: UNK
     Route: 065
  5. TRAMADOL. [Suspect]
     Active Substance: TRAMADOL
     Indication: HEADACHE
     Dosage: 10 DOSAGE FORM, QD (10X50 MG, I.E. ABOUT 1,500 TO 2,000 MG PER DAY)
     Route: 048
     Dates: start: 2015
  6. TRAMADOL. [Suspect]
     Active Substance: TRAMADOL
     Dosage: 1200 MILLIGRAM, QD (1200 MILLIGRAM, 1/DAY)
     Route: 048
  7. BUPRENORPHINE HYDROCHLORIDE. [Concomitant]
     Active Substance: BUPRENORPHINE HYDROCHLORIDE
     Dosage: 14 MILLIGRAM, QD (14 MILLIGRAM, 1/DAY )
     Route: 065
  8. ABILIFY [Concomitant]
     Active Substance: ARIPIPRAZOLE
     Dosage: UNK
  9. TRAMADOL. [Suspect]
     Active Substance: TRAMADOL
     Indication: HEADACHE
     Dosage: CONSUMING AT LEAST 4 TO 6 TRAMADOL 200 MG SR
     Route: 048
     Dates: start: 2015
  10. ACUPAN [Concomitant]
     Active Substance: NEFOPAM HYDROCHLORIDE
     Dosage: UNK

REACTIONS (7)
  - Drug dependence [Recovering/Resolving]
  - Drug abuse [Recovering/Resolving]
  - Overdose [Unknown]
  - Nausea [Unknown]
  - Intentional product misuse [Unknown]
  - Intentional overdose [Recovering/Resolving]
  - Anxiety [Unknown]

NARRATIVE: CASE EVENT DATE: 2015
